FAERS Safety Report 8507031-0 (Version None)
Quarter: 2012Q3

REPORT INFORMATION
  Report Type: 
  Country: None (occurrence: None)
  Receive Date: 20120712
  Receipt Date: 20120709
  Transmission Date: 20120928
  Serious: Yes (Other)
  Sender: FDA-Public Use
  Company Number: PHEH2012US013478

PATIENT
  Sex: Female

DRUGS (2)
  1. TEKTURNA [Concomitant]
     Dosage: UNK UKN, UNK
  2. DIOVAN [Suspect]
     Indication: HYPERTENSION
     Dosage: 160 MG, QD
     Route: 048

REACTIONS (1)
  - FALL [None]
